FAERS Safety Report 9470867 (Version 1)
Quarter: 2013Q3

REPORT INFORMATION
  Report Type: Spontaneous
  Country: JP (occurrence: JP)
  Receive Date: 20130822
  Receipt Date: 20130822
  Transmission Date: 20140515
  Serious: Yes (Hospitalization, Other)
  Sender: FDA-Public Use
  Company Number: PHHY2013JP090984

PATIENT
  Age: 80 Year
  Sex: Male

DRUGS (5)
  1. DIOVAN [Suspect]
     Indication: HYPERTENSION
     Dosage: UNK UKN, UNK
     Route: 048
     Dates: start: 2008
  2. DIOVAN [Suspect]
     Dosage: 4 DF, UNK
     Route: 048
  3. DIOVAN [Suspect]
     Dosage: 2 DF, UNK
     Route: 048
  4. DIOVAN [Suspect]
     Dosage: 1 DF, UNK
     Route: 048
  5. DIOVAN [Suspect]
     Dosage: UNK UKN, UNK
     Route: 048
     Dates: end: 201305

REACTIONS (2)
  - Spinal column stenosis [Recovered/Resolved with Sequelae]
  - Rash generalised [Recovering/Resolving]
